FAERS Safety Report 4603011-6 (Version None)
Quarter: 2005Q1

REPORT INFORMATION
  Report Type: 
  Country: None (occurrence: None)
  Receive Date: 20050309
  Receipt Date: 20050225
  Transmission Date: 20050727
  Serious: Yes (Disabling)
  Sender: FDA-Public Use
  Company Number: US-ROCHE-397065

PATIENT
  Sex: Male

DRUGS (1)
  1. LARIAM [Suspect]
     Indication: MALARIA PROPHYLAXIS
     Dosage: FREQUENCY STATED AS WEEKLY.
     Route: 048
     Dates: start: 20030103, end: 20030218

REACTIONS (13)
  - ANXIETY [None]
  - CONFUSIONAL STATE [None]
  - DEPRESSION [None]
  - DIZZINESS [None]
  - DRUG TOXICITY [None]
  - HEARING IMPAIRED [None]
  - INSOMNIA [None]
  - MOOD SWINGS [None]
  - PANIC ATTACK [None]
  - PARANOIA [None]
  - PSYCHOTIC DISORDER [None]
  - TINNITUS [None]
  - VISUAL DISTURBANCE [None]
